FAERS Safety Report 9995209 (Version 2)
Quarter: 2014Q1

REPORT INFORMATION
  Report Type: Spontaneous
  Country: DE (occurrence: DE)
  Receive Date: 20140311
  Receipt Date: 20140319
  Transmission Date: 20141002
  Serious: Yes (Other)
  Sender: FDA-Public Use
  Company Number: DE-UCBSA-113961

PATIENT
  Age: 65 Year
  Sex: Male
  Weight: 70 kg

DRUGS (1)
  1. NEUPRO [Suspect]
     Indication: PARKINSON^S DISEASE

REACTIONS (3)
  - Application site haemorrhage [Recovered/Resolved]
  - Application site vesicles [Recovered/Resolved]
  - Application site erythema [Recovered/Resolved]
